FAERS Safety Report 7313862-5 (Version None)
Quarter: 2011Q1

REPORT INFORMATION
  Report Type: 
  Country: None (occurrence: None)
  Receive Date: 20110215
  Receipt Date: 20110202
  Transmission Date: 20110831
  Serious: Yes (Disabling)
  Sender: FDA-Public Use
  Company Number: 20110096

PATIENT
  Age: 73 Year
  Sex: Female

DRUGS (2)
  1. DEXAMETHASONE SODIUM PHOSPHATE INJECTION, USP (4930-25) 4 MG/ML [Suspect]
     Indication: NEURITIS
     Dosage: 4 MG INJECTION NOS
     Dates: start: 20100923
  2. DEXAMETHASONE SODIUM PHOSPHATE INJECTION, USP (4930-25) 4 MG/ML [Suspect]
     Indication: PAIN
     Dosage: 4 MG INTRA-ARTICULAR
     Route: 014
     Dates: start: 20101012

REACTIONS (4)
  - INJECTION SITE INFLAMMATION [None]
  - INJECTION SITE ERYTHEMA [None]
  - RED BLOOD CELL SEDIMENTATION RATE INCREASED [None]
  - INJECTION SITE SWELLING [None]
